FAERS Safety Report 8353516 (Version 2)
Quarter: 2012Q4

REPORT INFORMATION
  Report Type: Spontaneous
  Country: DE (occurrence: None)
  Receive Date: 20120113
  Receipt Date: 20120920
  Transmission Date: 20130627
  Serious: Yes (Other)
  Sender: FDA-Public Use
  Company Number: EU-2012-10001

PATIENT
  Sex: Female
  Weight: 60 kg

DRUGS (12)
  1. SAMSCA [Suspect]
     Indication: HYPONATRAEMIA
     Route: 048
     Dates: start: 20111221, end: 20120102
  2. SAMSCA [Suspect]
     Indication: HYPONATRAEMIA
     Route: 048
     Dates: start: 20120103
  3. ATACAND (CANDESARTAN CILEXETIL) [Concomitant]
  4. TORSEMIDE [Concomitant]
  5. CEFTRIAXONE [Concomitant]
  6. CLARITHROMYCIN [Concomitant]
  7. COLCHIN (COLCHICINE) [Concomitant]
  8. NEBIVOLOL HYDROCHLORIDE [Concomitant]
  9. ASPIRIN [Concomitant]
  10. CARMEN (LERANIDIPINE) [Concomitant]
  11. FRAGMIN [Concomitant]
  12. ALLOPURINOL (ALLOPURINOL) [Concomitant]

REACTIONS (5)
  - Hypokalaemia [None]
  - Wrong technique in drug usage process [None]
  - Rash papular [None]
  - Hypertension [None]
  - Incorrect drug administration rate [None]
